FAERS Safety Report 12565551 (Version 1)
Quarter: 2016Q3

REPORT INFORMATION
  Report Type: Spontaneous
  Country: US (occurrence: US)
  Receive Date: 20160718
  Receipt Date: 20160718
  Transmission Date: 20161109
  Serious: Yes (Life-Threatening, Hospitalization, Other)
  Sender: FDA-Public Use
  Company Number: US-FRESENIUS MEDICAL CARE RENAL THERAPIES GROUP-17137472015-999334

PATIENT
  Age: 57 Year
  Sex: Male
  Weight: 108 kg

DRUGS (7)
  1. CARVEDILOL. [Concomitant]
     Active Substance: CARVEDILOL
     Indication: PRODUCT USED FOR UNKNOWN INDICATION
     Route: 048
  2. BICARBONATE [Concomitant]
     Active Substance: BICARBONATE ION
     Indication: PRODUCT USED FOR UNKNOWN INDICATION
     Route: 065
  3. RENVELA [Concomitant]
     Active Substance: SEVELAMER CARBONATE
     Indication: PRODUCT USED FOR UNKNOWN INDICATION
     Route: 048
  4. HEPARIN [Concomitant]
     Active Substance: HEPARIN SODIUM
     Indication: PRODUCT USED FOR UNKNOWN INDICATION
     Dosage: HEPARIN 1000UNITS/ML (3000UNITS BOLUS) INTRAVENOUS PUSH (IVP) WITH 500UNITS/HR INTRADIALYTIC PERIOD
     Route: 042
  5. 0.9% SODIUM CHLORIDE INJECTION [Suspect]
     Active Substance: SODIUM CHLORIDE
     Indication: END STAGE RENAL DISEASE
     Route: 065
     Dates: start: 20121023
  6. ATORVASTATIN [Concomitant]
     Active Substance: ATORVASTATIN
     Indication: PRODUCT USED FOR UNKNOWN INDICATION
     Route: 048
  7. PHOSLO [Concomitant]
     Active Substance: CALCIUM ACETATE
     Indication: PRODUCT USED FOR UNKNOWN INDICATION
     Route: 048

REACTIONS (1)
  - Cardiac arrest [Unknown]

NARRATIVE: CASE EVENT DATE: 20150909
